FAERS Safety Report 23575119 (Version 1)
Quarter: 2024Q1

REPORT INFORMATION
  Report Type: Spontaneous
  Country: US (occurrence: None)
  Receive Date: 20240227
  Receipt Date: 20240227
  Transmission Date: 20240410
  Serious: Yes (Disabling)
  Sender: FDA-Public Use
  Company Number: None

PATIENT
  Age: 33 Year
  Sex: Female
  Weight: 76.5 kg

DRUGS (11)
  1. BELSOMRA [Suspect]
     Active Substance: SUVOREXANT
     Indication: Insomnia
     Dosage: 1 TABLET AT BEDTIME ORAL?
     Route: 048
     Dates: start: 20240226, end: 20240227
  2. Omnipod closed loop system, with Dexcom G-6 [Concomitant]
  3. Lyumjev U-100 [Concomitant]
  4. PRAZOSIN [Concomitant]
     Active Substance: PRAZOSIN
  5. SERTRALINE [Concomitant]
     Active Substance: SERTRALINE HYDROCHLORIDE
  6. DULOXETINE [Concomitant]
     Active Substance: DULOXETINE
  7. HYDROXYZINE [Concomitant]
     Active Substance: HYDROXYZINE HYDROCHLORIDE
  8. XULANE [Concomitant]
     Active Substance: ETHINYL ESTRADIOL\NORELGESTROMIN
  9. Medical cannabis as needed (2.5-10mg via edible) [Concomitant]
  10. Multivitamin for vegan diet. Gas-X as needed [Concomitant]
  11. Aleve as needed [Concomitant]

REACTIONS (9)
  - Abnormal dreams [None]
  - Sleep terror [None]
  - Hallucination [None]
  - Nightmare [None]
  - Night sweats [None]
  - Screaming [None]
  - Visual impairment [None]
  - Sleep paralysis [None]
  - Self-injurious ideation [None]

NARRATIVE: CASE EVENT DATE: 20240227
